FAERS Safety Report 5626545-4 (Version None)
Quarter: 2008Q1

REPORT INFORMATION
  Report Type: 
  Country: None (occurrence: None)
  Receive Date: 20080214
  Receipt Date: 20080213
  Transmission Date: 20080703
  Serious: Yes (Other)
  Sender: FDA-Public Use
  Company Number: US-RANBAXY-2007US-08986

PATIENT

DRUGS (3)
  1. ISOTRETINOIN [Suspect]
     Indication: DRUG USE FOR UNKNOWN INDICATION
     Dosage: 40 MG, QD
     Route: 048
     Dates: start: 20070111, end: 20070522
  2. ALBUTEROL [Concomitant]
     Indication: ASTHMA
     Dosage: UNK
     Route: 050
  3. QVAR 40 [Suspect]
     Indication: ASTHMA
     Dosage: 1 PUFF IN MORNING, 1 PUFF IN EVENING
     Route: 050

REACTIONS (4)
  - DRUG DOSE OMISSION [None]
  - DRUG EXPOSURE DURING PREGNANCY [None]
  - PREGNANCY [None]
  - UNINTENDED PREGNANCY [None]
